FAERS Safety Report 15895311 (Version 1)
Quarter: 2019Q1

REPORT INFORMATION
  Report Type: Spontaneous
  Country: US (occurrence: US)
  Receive Date: 20190131
  Receipt Date: 20190131
  Transmission Date: 20190417
  Serious: Yes (Other)
  Sender: FDA-Public Use
  Company Number: None

PATIENT
  Age: 72 Year
  Sex: Male
  Weight: 87.4 kg

DRUGS (7)
  1. ROCURONIUM [Suspect]
     Active Substance: ROCURONIUM BROMIDE
     Indication: SURGERY
     Dosage: ?          OTHER FREQUENCY:ONCE;?
     Route: 042
     Dates: start: 20190123, end: 20190123
  2. LIDOCAINE. [Concomitant]
     Active Substance: LIDOCAINE
     Dates: start: 20190123, end: 20190123
  3. FENTANYL. [Concomitant]
     Active Substance: FENTANYL
     Dates: start: 20190123, end: 20190123
  4. ALBUTEROL. [Concomitant]
     Active Substance: ALBUTEROL
     Dates: start: 20190123, end: 20190123
  5. SUFENTANIL [Concomitant]
     Active Substance: SUFENTANIL
     Dates: start: 20190123, end: 20190123
  6. PROPOFOL. [Concomitant]
     Active Substance: PROPOFOL
     Dates: start: 20190123, end: 20190123
  7. MIDAZOLAM [Concomitant]
     Active Substance: MIDAZOLAM HYDROCHLORIDE
     Dates: start: 20190123, end: 20190123

REACTIONS (2)
  - Drug effect incomplete [None]
  - Product storage error [None]

NARRATIVE: CASE EVENT DATE: 20190123
